FAERS Safety Report 10312517 (Version 1)
Quarter: 2014Q3

REPORT INFORMATION
  Report Type: Spontaneous
  Country: US (occurrence: US)
  Receive Date: 20140718
  Receipt Date: 20140718
  Transmission Date: 20150326
  Serious: Yes (Death)
  Sender: FDA-Public Use
  Company Number: US-009507513-1407USA007511

PATIENT
  Sex: Male

DRUGS (7)
  1. ZOCOR [Suspect]
     Active Substance: SIMVASTATIN
     Route: 048
  2. VOTRIENT [Interacting]
     Active Substance: PAZOPANIB HYDROCHLORIDE
     Indication: RENAL CANCER
     Dosage: 400 MG PER DAY
     Route: 048
     Dates: start: 20140601
  3. ZESTRIL [Concomitant]
     Active Substance: LISINOPRIL
  4. CALCIUM (UNSPECIFIED) (+) VITAMIN D (UNSPECIFIED) [Concomitant]
     Active Substance: CALCIUM CARBONATE\VITAMIN D
  5. BOOST [Concomitant]
  6. LANOXIN [Concomitant]
     Active Substance: DIGOXIN
  7. NORPACE [Interacting]
     Active Substance: DISOPYRAMIDE PHOSPHATE
     Route: 065

REACTIONS (2)
  - Death [Fatal]
  - Drug interaction [Fatal]

NARRATIVE: CASE EVENT DATE: 2014
